FAERS Safety Report 12850111 (Version 3)
Quarter: 2017Q3

REPORT INFORMATION
  Report Type: Spontaneous
  Country: US (occurrence: US)
  Receive Date: 20161014
  Receipt Date: 20170921
  Transmission Date: 20171127
  Serious: Yes (Other)
  Sender: FDA-Public Use
  Company Number: US-ROCHE-1769098

PATIENT
  Sex: Male

DRUGS (7)
  1. OMEPRAZOLE. [Concomitant]
     Active Substance: OMEPRAZOLE
  2. TIKOSYN [Concomitant]
     Active Substance: DOFETILIDE
  3. ESBRIET [Suspect]
     Active Substance: PIRFENIDONE
     Indication: IDIOPATHIC PULMONARY FIBROSIS
     Route: 048
     Dates: start: 20160519
  4. AMBIEN [Concomitant]
     Active Substance: ZOLPIDEM TARTRATE
  5. ELIQUIS [Concomitant]
     Active Substance: APIXABAN
  6. LASIX [Concomitant]
     Active Substance: FUROSEMIDE
  7. ONDANSETRON HCL [Concomitant]
     Active Substance: ONDANSETRON HYDROCHLORIDE

REACTIONS (3)
  - Nausea [Not Recovered/Not Resolved]
  - Prostate cancer [Unknown]
  - Dizziness [Not Recovered/Not Resolved]
